FAERS Safety Report 7925559 (Version 3)
Quarter: 2014Q1

REPORT INFORMATION
  Report Type: Spontaneous
  Country: US (occurrence: US)
  Receive Date: 20110502
  Receipt Date: 20140325
  Transmission Date: 20141002
  Serious: Yes (Hospitalization, Other)
  Sender: FDA-Public Use
  Company Number: US-BAYER-2010-002218

PATIENT
  Age: 36 Year
  Sex: Female
  Weight: 65.76 kg

DRUGS (4)
  1. YASMIN [Suspect]
     Indication: PRODUCT USED FOR UNKNOWN INDICATION
     Dosage: UNK
     Route: 048
     Dates: start: 200603, end: 200606
  2. YAZ [Suspect]
     Indication: PRODUCT USED FOR UNKNOWN INDICATION
     Dosage: UNK
     Route: 048
     Dates: start: 200603, end: 200606
  3. TYLENOL [Concomitant]
     Indication: PAIN
     Dosage: UNK UNK, PRN
  4. IBUPROFEN [Concomitant]
     Indication: PAIN
     Dosage: UNK UNK, PRN

REACTIONS (4)
  - Cholelithiasis [None]
  - Cholecystitis chronic [None]
  - Mental disorder [None]
  - Mental disorder [None]
